FAERS Safety Report 25452725 (Version 1)
Quarter: 2025Q2

REPORT INFORMATION
  Report Type: Spontaneous
  Country: FR (occurrence: FR)
  Receive Date: 20250618
  Receipt Date: 20250618
  Transmission Date: 20250716
  Serious: Yes (Other)
  Sender: ORGANON
  Company Number: FR-ORGANON-O2506FRA001557

PATIENT
  Age: 73 Year
  Sex: Female

DRUGS (1)
  1. FOSAMAX [Suspect]
     Active Substance: ALENDRONATE SODIUM
     Indication: Osteoporosis
     Dosage: 1 TABLET PER WEEK
     Route: 048
     Dates: start: 2005, end: 2015

REACTIONS (7)
  - Metastases to bone [Unknown]
  - Malignant neoplasm progression [Unknown]
  - Renal failure [Unknown]
  - Pulpless tooth [Unknown]
  - Gingival hypertrophy [Recovered/Resolved]
  - Gingival recession [Recovered/Resolved]
  - Contraindicated product administered [Unknown]

NARRATIVE: CASE EVENT DATE: 20050101
